FAERS Safety Report 8501440-1 (Version None)
Quarter: 2012Q3

REPORT INFORMATION
  Report Type: 
  Country: None (occurrence: None)
  Receive Date: 20120710
  Receipt Date: 20120706
  Transmission Date: 20120928
  Serious: Yes (Hospitalization)
  Sender: FDA-Public Use
  Company Number: IT-ROCHE-1085576

PATIENT

DRUGS (4)
  1. MABTHERA [Suspect]
     Indication: NON-HODGKIN'S LYMPHOMA
     Dates: start: 20120308, end: 20120522
  2. VINBLASTINE SULFATE [Concomitant]
     Dates: start: 20120308, end: 20120522
  3. DOXORUBICIN HCL [Concomitant]
     Dates: start: 20120308, end: 20120522
  4. CYCLOPHOSPHAMIDE [Concomitant]
     Dates: start: 20120308, end: 20120522

REACTIONS (5)
  - STUPOR [None]
  - PROGRESSIVE MULTIFOCAL LEUKOENCEPHALOPATHY [None]
  - TINNITUS [None]
  - VERTIGO [None]
  - VOMITING [None]
